FAERS Safety Report 5393908-4 (Version None)
Quarter: 2007Q3

REPORT INFORMATION
  Report Type: 
  Country: None (occurrence: None)
  Receive Date: 20070723
  Receipt Date: 20061030
  Transmission Date: 20080115
  Serious: No
  Sender: FDA-Public Use
  Company Number: A0625373A

PATIENT
  Sex: Female

DRUGS (3)
  1. AVANDIA [Suspect]
     Dosage: 4MG PER DAY
     Route: 048
  2. SYNTHROID [Concomitant]
  3. ATENOLOL [Concomitant]

REACTIONS (9)
  - ALOPECIA [None]
  - BLOOD PRESSURE DECREASED [None]
  - DRY SKIN [None]
  - HEPATIC FUNCTION ABNORMAL [None]
  - NAUSEA [None]
  - SKIN EXFOLIATION [None]
  - SWELLING [None]
  - VOMITING [None]
  - WEIGHT INCREASED [None]
